FAERS Safety Report 4758444-4 (Version None)
Quarter: 2005Q3

REPORT INFORMATION
  Report Type: 
  Country: None (occurrence: None)
  Receive Date: 20050901
  Receipt Date: 20050727
  Transmission Date: 20060218
  Serious: Yes (Hospitalization)
  Sender: FDA-Public Use
  Company Number: US-BOEHRINGER INGELHEIM PHARMACEUTICALS, INC.-2005-BP-12745BP

PATIENT
  Sex: Female
  Weight: 61.23 kg

DRUGS (7)
  1. MIRAPEX [Suspect]
     Indication: RESTLESS LEGS SYNDROME
     Route: 048
     Dates: start: 20040701
  2. CELEBREX [Concomitant]
     Indication: ARTHRITIS
     Dosage: QD
     Route: 048
  3. LISINOPRIL [Concomitant]
     Indication: HYPERTENSION
     Route: 048
  4. ZYRTEC-D 12 HOUR [Concomitant]
     Dosage: BID
     Route: 048
  5. ACIPHEX [Concomitant]
     Dates: start: 20021002
  6. MULTI-VITAMIN [Concomitant]
  7. BLACK COHESH [Concomitant]

REACTIONS (5)
  - DIZZINESS [None]
  - HYPERHIDROSIS [None]
  - LOSS OF CONSCIOUSNESS [None]
  - NAUSEA [None]
  - SYNCOPE [None]
